FAERS Safety Report 12901054 (Version 2)
Quarter: 2017Q2

REPORT INFORMATION
  Report Type: Report from Study
  Country: EG (occurrence: EG)
  Receive Date: 20161101
  Receipt Date: 20170517
  Transmission Date: 20170830
  Serious: Yes (Hospitalization)
  Sender: FDA-Public Use
  Company Number: EG-SA-2016SA196408

PATIENT
  Age: 61 Year
  Sex: Male

DRUGS (12)
  1. CIPROFLOXACIN. [Concomitant]
     Active Substance: CIPROFLOXACIN
     Indication: PYREXIA
     Dates: start: 20160513, end: 20160514
  2. BEVACIZUMAB [Suspect]
     Active Substance: BEVACIZUMAB
     Indication: COLORECTAL CANCER METASTATIC
     Dosage: FREQUENCY:ONCE IN TWO WEEKS
     Route: 042
     Dates: start: 20160512
  3. ONDANSETRON [Concomitant]
     Active Substance: ONDANSETRON
     Indication: VOMITING
     Dates: start: 20160513, end: 20160513
  4. VITAMIN K [Concomitant]
     Active Substance: PHYTONADIONE
     Indication: UPPER GASTROINTESTINAL HAEMORRHAGE
     Dates: start: 20160513, end: 20160513
  5. DIOSMIN/HESPERIDIN [Concomitant]
     Indication: UPPER GASTROINTESTINAL HAEMORRHAGE
     Dates: start: 20160513, end: 20160513
  6. OXALIPLATIN. [Suspect]
     Active Substance: OXALIPLATIN
     Indication: COLORECTAL CANCER METASTATIC
     Dosage: FREQUENCY:ONCE IN TWO WEEKS
     Route: 042
     Dates: start: 20160512
  7. PARACETAMOL [Concomitant]
     Active Substance: ACETAMINOPHEN
     Indication: PYREXIA
     Dates: start: 20160512, end: 20160512
  8. PARACETAMOL [Concomitant]
     Active Substance: ACETAMINOPHEN
     Indication: PYREXIA
     Dates: start: 20160513
  9. DEXAMETHASONE. [Concomitant]
     Active Substance: DEXAMETHASONE
     Indication: PREMEDICATION
     Dates: start: 20160512, end: 20160512
  10. GRANISETRON [Concomitant]
     Active Substance: GRANISETRON
     Indication: PREMEDICATION
     Dates: start: 20160512, end: 20160512
  11. FLUOROURACIL. [Suspect]
     Active Substance: FLUOROURACIL
     Indication: COLORECTAL CANCER METASTATIC
     Dosage: FREQUENCY:ONCE IN TWO WEEKS
     Route: 042
     Dates: start: 20160512
  12. FOLINIC ACID [Suspect]
     Active Substance: LEUCOVORIN
     Indication: COLORECTAL CANCER METASTATIC
     Dosage: FREQUENCY:ONCE IN TWO WEEKS
     Route: 042
     Dates: start: 20160512

REACTIONS (1)
  - Pericarditis [Recovered/Resolved]

NARRATIVE: CASE EVENT DATE: 20160514
